FAERS Safety Report 9645830 (Version 2)
Quarter: 2013Q4

REPORT INFORMATION
  Report Type: Spontaneous
  Country: US (occurrence: US)
  Receive Date: 20131025
  Receipt Date: 20131025
  Transmission Date: 20140711
  Serious: No
  Sender: FDA-Public Use
  Company Number: US-MYLANLABS-2013S1021119

PATIENT
  Age: 54 Year
  Sex: Female

DRUGS (3)
  1. RIZATRIPTAN BENZOATE ORALLY DISINTEGRATING TABLETS [Suspect]
     Indication: MIGRAINE
     Dosage: 1 TO 2 TABLETS PO Q24H PRN
     Route: 048
     Dates: start: 20130908
  2. ESTRADIOL [Concomitant]
     Route: 062
  3. HYDROCORTISONE [Concomitant]

REACTIONS (2)
  - Wrong technique in drug usage process [Not Recovered/Not Resolved]
  - No adverse event [Not Recovered/Not Resolved]
